FAERS Safety Report 5219704-6 (Version None)
Quarter: 2006Q4

REPORT INFORMATION
  Report Type: 
  Country: None (occurrence: None)
  Receive Date: 20061201
  Receipt Date: 20060703
  Transmission Date: 20070319
  Serious: No
  Sender: FDA-Public Use
  Company Number: 2006PV016906

PATIENT
  Age: 68 Year
  Sex: Female
  Weight: 92.0802 kg

DRUGS (5)
  1. BYETTA [Suspect]
     Indication: DIABETES MELLITUS NON-INSULIN-DEPENDENT
     Dosage: 10 MCG;BID;SC
     Route: 058
     Dates: start: 20060625
  2. GLYBURIDE [Concomitant]
  3. METFORMIN HCL [Concomitant]
  4. ZOCOR [Concomitant]
  5. COUMADIN [Concomitant]

REACTIONS (13)
  - BLOOD GLUCOSE DECREASED [None]
  - BLOOD GLUCOSE INCREASED [None]
  - DECREASED APPETITE [None]
  - DEHYDRATION [None]
  - DEPRESSION [None]
  - INJECTION SITE BRUISING [None]
  - INJECTION SITE PAIN [None]
  - INJECTION SITE RASH [None]
  - NAUSEA [None]
  - THERAPEUTIC RESPONSE UNEXPECTED [None]
  - TOOTH EXTRACTION [None]
  - VISUAL ACUITY REDUCED [None]
  - WEIGHT DECREASED [None]
